FAERS Safety Report 8091738-6 (Version None)
Quarter: 2012Q1

REPORT INFORMATION
  Report Type: 
  Country: None (occurrence: None)
  Receive Date: 20120131
  Receipt Date: 20120126
  Transmission Date: 20120608
  Serious: No
  Sender: FDA-Public Use
  Company Number: US-PFIZER INC-2012022467

PATIENT
  Sex: Female
  Weight: 117.9 kg

DRUGS (9)
  1. ACCUPRIL [Suspect]
     Indication: PROPHYLAXIS
  2. ATIVAN [Concomitant]
     Dosage: 1 MG, 1X/DAY
  3. ACCUPRIL [Suspect]
     Indication: HYPERTENSION
     Dosage: 20 MG, 1X/DAY
     Route: 048
     Dates: start: 19990101
  4. TOPROL-XL [Concomitant]
     Dosage: 50 MG, 1X/DAY
  5. INSULIN ASPART [Concomitant]
     Dosage: UNK
  6. EFFEXOR [Suspect]
     Dosage: 150 MG, 1X/DAY
     Route: 048
     Dates: start: 20040101
  7. CIMETIDINE [Concomitant]
     Dosage: 800 MG, 3X/DAY
  8. ZYRTEC [Concomitant]
     Dosage: ONCE A DAY
  9. LANTUS [Concomitant]
     Dosage: UNK

REACTIONS (2)
  - DIZZINESS [None]
  - SINUSITIS [None]
